FAERS Safety Report 23010456 (Version 2)
Quarter: 2023Q4

REPORT INFORMATION
  Report Type: Spontaneous
  Country: JP (occurrence: JP)
  Receive Date: 20230929
  Receipt Date: 20231018
  Transmission Date: 20240110
  Serious: No
  Sender: FDA-Public Use
  Company Number: JP-UCBJ-CD202310125UCBPHAPROD

PATIENT
  Age: 65 Year
  Sex: Female

DRUGS (1)
  1. LEVETIRACETAM [Suspect]
     Active Substance: LEVETIRACETAM
     Indication: Partial seizures
     Dosage: 500 MILLIGRAM, 12 HOURS (AT A DAILY DOSE OF 1000MG)
     Route: 048

REACTIONS (1)
  - White blood cell count decreased [Not Recovered/Not Resolved]
